FAERS Safety Report 25528304 (Version 1)
Quarter: 2025Q3

REPORT INFORMATION
  Report Type: Spontaneous
  Country: US (occurrence: US)
  Receive Date: 20250708
  Receipt Date: 20250708
  Transmission Date: 20251020
  Serious: Yes (Hospitalization, Other)
  Sender: STRIDES
  Company Number: US-STRIDES ARCOLAB LIMITED-2025SP008275

PATIENT
  Sex: Male

DRUGS (12)
  1. OLANZAPINE [Suspect]
     Active Substance: OLANZAPINE
     Indication: Hallucination
     Route: 065
  2. OLANZAPINE [Suspect]
     Active Substance: OLANZAPINE
     Indication: Imperception
  3. HALOPERIDOL [Suspect]
     Active Substance: HALOPERIDOL
     Indication: Hallucination
     Route: 065
  4. HALOPERIDOL [Suspect]
     Active Substance: HALOPERIDOL
     Indication: Imperception
  5. LORAZEPAM [Suspect]
     Active Substance: LORAZEPAM
     Indication: Hallucination
     Route: 065
  6. LORAZEPAM [Suspect]
     Active Substance: LORAZEPAM
     Indication: Imperception
  7. CARBAMAZEPINE [Suspect]
     Active Substance: CARBAMAZEPINE
     Indication: Hallucination
     Route: 065
  8. CARBAMAZEPINE [Suspect]
     Active Substance: CARBAMAZEPINE
     Indication: Imperception
  9. BUPROPION [Suspect]
     Active Substance: BUPROPION
     Indication: Hallucination
     Route: 065
  10. BUPROPION [Suspect]
     Active Substance: BUPROPION
     Indication: Imperception
  11. GUANFACINE [Concomitant]
     Active Substance: GUANFACINE
     Indication: Hallucination
     Route: 065
  12. GUANFACINE [Concomitant]
     Active Substance: GUANFACINE
     Indication: Imperception

REACTIONS (3)
  - Hallucination [Unknown]
  - Imperception [Unknown]
  - Off label use [Unknown]
